FAERS Safety Report 4632046-2 (Version None)
Quarter: 2005Q2

REPORT INFORMATION
  Report Type: 
  Country: None (occurrence: None)
  Receive Date: 20050331
  Receipt Date: 20040312
  Transmission Date: 20051028
  Serious: Yes (Hospitalization)
  Sender: FDA-Public Use
  Company Number: 200411258BCC

PATIENT
  Age: 18 Year
  Sex: Female
  Weight: 71.2147 kg

DRUGS (4)
  1. ALEVE [Suspect]
     Dosage: ONCE, ORAL
     Route: 048
     Dates: start: 20040311
  2. TYLENOL [Suspect]
     Dosage: ONCE, ORAL
     Route: 048
     Dates: start: 20040311
  3. DAYQUIL [Suspect]
     Dosage: ONCE, ORAL
     Route: 048
     Dates: start: 20040311
  4. IBUPROFEN [Suspect]
     Dosage: ONCE, ORAL
     Route: 048

REACTIONS (2)
  - NAUSEA [None]
  - VOMITING [None]
